FAERS Safety Report 12883696 (Version 2)
Quarter: 2016Q4

REPORT INFORMATION
  Report Type: Spontaneous
  Country: US (occurrence: US)
  Receive Date: 20161025
  Receipt Date: 20161110
  Transmission Date: 20170207
  Serious: Yes (Life-Threatening, Hospitalization, Other)
  Sender: FDA-Public Use
  Company Number: US-009507513-1610USA011081

PATIENT
  Age: 26 Year
  Sex: Male

DRUGS (1)
  1. NOXAFIL [Suspect]
     Active Substance: POSACONAZOLE
     Indication: ANTIFUNGAL PROPHYLAXIS
     Dosage: 300 MG ONCE DAILY
     Route: 048
     Dates: start: 201511

REACTIONS (1)
  - Bone marrow transplant [Not Recovered/Not Resolved]

NARRATIVE: CASE EVENT DATE: 20160927
